FAERS Safety Report 11058245 (Version 1)
Quarter: 2015Q2

REPORT INFORMATION
  Report Type: Spontaneous
  Country: US (occurrence: None)
  Receive Date: 20150422
  Receipt Date: 20150422
  Transmission Date: 20150821
  Serious: No
  Sender: FDA-Public Use
  Company Number: None

PATIENT
  Age: 63 Year
  Sex: Female

DRUGS (10)
  1. EXEMESTANE. [Concomitant]
     Active Substance: EXEMESTANE
  2. HYDROCHLOROTHIAZIDE. [Concomitant]
     Active Substance: HYDROCHLOROTHIAZIDE
  3. IBRANCE [Suspect]
     Active Substance: PALBOCICLIB
     Dosage: 125MG  QDX 21  PO
     Route: 048
  4. ESTRADIOL. [Concomitant]
     Active Substance: ESTRADIOL
  5. TAMOXIFEN [Concomitant]
     Active Substance: TAMOXIFEN
  6. NIFEDICAL [Concomitant]
  7. PANTOPRAZ [Concomitant]
  8. ACEBUTOLOL [Concomitant]
     Active Substance: ACEBUTOLOL
  9. FASLODEX [Concomitant]
     Active Substance: FULVESTRANT
  10. VALACYCLOVER [Concomitant]

REACTIONS (1)
  - Unevaluable event [None]
